FAERS Safety Report 4370978-3 (Version None)
Quarter: 2004Q2

REPORT INFORMATION
  Report Type: 
  Country: None (occurrence: None)
  Receive Date: 20040601
  Receipt Date: 20040520
  Transmission Date: 20050107
  Serious: Yes (Other)
  Sender: FDA-Public Use
  Company Number: GB-JNJFOC-20040400577

PATIENT
  Age: 58 Year
  Sex: Female

DRUGS (1)
  1. RISPERDAL CONSTA [Suspect]
     Indication: PSYCHOTIC DISORDER
     Dosage: 25 MG, 1 IN 2 WEEK, INTRA-MUSCLAR
     Route: 030
     Dates: start: 20040304, end: 20040318

REACTIONS (7)
  - DYSPNOEA [None]
  - FACE OEDEMA [None]
  - FEELING ABNORMAL [None]
  - INFLUENZA LIKE ILLNESS [None]
  - JAUNDICE [None]
  - MUSCULAR WEAKNESS [None]
  - OEDEMA PERIPHERAL [None]
